FAERS Safety Report 19476982 (Version 2)
Quarter: 2021Q3

REPORT INFORMATION
  Report Type: Spontaneous
  Country: DE (occurrence: DE)
  Receive Date: 20210630
  Receipt Date: 20210831
  Transmission Date: 20211014
  Serious: Yes (Hospitalization)
  Sender: FDA-Public Use
  Company Number: NVSC2021DE139095

PATIENT
  Age: 55 Year
  Sex: Male
  Weight: 72 kg

DRUGS (12)
  1. GRANISETRON [Concomitant]
     Active Substance: GRANISETRON
     Indication: PRODUCT USED FOR UNKNOWN INDICATION
     Dosage: ONGOING
     Route: 042
     Dates: start: 20190926
  2. GRASTOFIL [Concomitant]
     Active Substance: FILGRASTIM
     Indication: PRODUCT USED FOR UNKNOWN INDICATION
     Dosage: 48 MG, QD
     Route: 058
     Dates: start: 20191007, end: 20191216
  3. ALLOPURINOL. [Concomitant]
     Active Substance: ALLOPURINOL
     Indication: PRODUCT USED FOR UNKNOWN INDICATION
     Dosage: ONGOING
     Route: 048
     Dates: start: 20190926
  4. RANITIDIN [Concomitant]
     Active Substance: RANITIDINE HYDROCHLORIDE
     Indication: PRODUCT USED FOR UNKNOWN INDICATION
     Dosage: ONGOING
     Route: 042
     Dates: start: 20190926
  5. FENISTIL [Concomitant]
     Active Substance: DIMETHINDENE
     Indication: PRODUCT USED FOR UNKNOWN INDICATION
     Dosage: ONGOING
     Route: 042
     Dates: start: 20190926
  6. PARACETAMOL [Concomitant]
     Active Substance: ACETAMINOPHEN
     Indication: PRODUCT USED FOR UNKNOWN INDICATION
     Dosage: 10 G
     Route: 065
     Dates: start: 20210514
  7. ATEZOLIZUMAB. [Suspect]
     Active Substance: ATEZOLIZUMAB
     Indication: NON-SMALL CELL LUNG CANCER
     Dosage: ON 27/APR/2021, LAST DOSE OF ATEZOLIZUMAB WAS ADMINISTERED.
     Route: 042
     Dates: start: 20190926
  8. PACLITAXEL. [Suspect]
     Active Substance: PACLITAXEL
     Indication: NON-SMALL CELL LUNG CANCER
     Dosage: ON 16/DEC/2019, LAST DOSE OF PACLITAXEL WAS ADMINISTERED.
     Route: 042
     Dates: start: 20190926
  9. CARBOPLATIN. [Suspect]
     Active Substance: CARBOPLATIN
     Indication: NON-SMALL CELL LUNG CANCER
     Dosage: DOSE: 5 MG/MIN*MLON 16/DEC/2019, LAST DOSE OF CARBOPLATIN WAS ADMINISTERED.
     Route: 042
     Dates: start: 20190926
  10. DEXAMETHASON [Concomitant]
     Active Substance: DEXAMETHASONE
     Dosage: 36 MG
     Route: 048
     Dates: start: 20190927
  11. BEVACIZUMAB. [Suspect]
     Active Substance: BEVACIZUMAB
     Indication: NON-SMALL CELL LUNG CANCER
     Dosage: ON 27/APR/2021, LAST DOSE OF BEVACIZUMAB WAS ADMINISTERED.
     Route: 042
     Dates: start: 20190926
  12. DEXAMETHASON [Concomitant]
     Active Substance: DEXAMETHASONE
     Indication: PRODUCT USED FOR UNKNOWN INDICATION
     Dosage: 24 MG
     Route: 042
     Dates: start: 20190926

REACTIONS (1)
  - Hepatitis [Recovered/Resolved]

NARRATIVE: CASE EVENT DATE: 20210515
